APPROVED DRUG PRODUCT: MORPHINE SULFATE
Active Ingredient: MORPHINE SULFATE
Strength: 15MG
Dosage Form/Route: TABLET;ORAL
Application: N022207 | Product #001 | TE Code: AB
Applicant: HIKMA PHARMACEUTICALS USA INC
Approved: Mar 17, 2008 | RLD: Yes | RS: No | Type: RX